FAERS Safety Report 5398730-0 (Version None)
Quarter: 2007Q3

REPORT INFORMATION
  Report Type: 
  Country: None (occurrence: None)
  Receive Date: 20070726
  Receipt Date: 20060711
  Transmission Date: 20080115
  Serious: No
  Sender: FDA-Public Use
  Company Number: US-AMGEN-KDL186504

PATIENT
  Sex: Male
  Weight: 93.5 kg

DRUGS (9)
  1. PROCRIT [Suspect]
     Indication: RENAL FAILURE CHRONIC
     Route: 058
     Dates: start: 20040101
  2. IRON [Concomitant]
  3. ASPIRIN [Concomitant]
  4. DIGOXIN [Concomitant]
  5. TOPROL-XL [Concomitant]
  6. ZOLOFT [Concomitant]
  7. TORSEMIDE [Concomitant]
  8. COUMADIN [Concomitant]
  9. OXYGEN [Concomitant]

REACTIONS (3)
  - FATIGUE [None]
  - INJECTION SITE BRUISING [None]
  - MUSCULOSKELETAL PAIN [None]
